FAERS Safety Report 6389640-0 (Version None)
Quarter: 2009Q4

REPORT INFORMATION
  Report Type: 
  Country: None (occurrence: None)
  Receive Date: 20091006
  Receipt Date: 20090928
  Transmission Date: 20100525
  Serious: Yes (Other)
  Sender: FDA-Public Use
  Company Number: US-ASTRAZENECA-2009UW11455

PATIENT
  Age: 50 Year
  Sex: Female
  Weight: 99.8 kg

DRUGS (2)
  1. SEROQUEL [Suspect]
     Indication: DEPRESSION
     Route: 048
     Dates: start: 20040101
  2. WELLBUTRIN [Concomitant]
     Dates: start: 20040101

REACTIONS (8)
  - ADVERSE DRUG REACTION [None]
  - BLOOD CHOLESTEROL INCREASED [None]
  - CHEST PAIN [None]
  - DIVERTICULITIS [None]
  - DRUG DEPENDENCE [None]
  - OBESITY [None]
  - PULMONARY EMBOLISM [None]
  - TYPE 2 DIABETES MELLITUS [None]
